FAERS Safety Report 24238815 (Version 6)
Quarter: 2025Q1

REPORT INFORMATION
  Report Type: Report from Study
  Country: US (occurrence: US)
  Receive Date: 20240822
  Receipt Date: 20250305
  Transmission Date: 20250409
  Serious: No
  Sender: ACADIA PHARMACEUTICALS
  Company Number: US-ACADIA PHARMACEUTICALS INC.-ACA-2024-PIM-004169

PATIENT
  Sex: Male

DRUGS (12)
  1. NUPLAZID [Suspect]
     Active Substance: PIMAVANSERIN TARTRATE
     Indication: Parkinson^s disease
     Dosage: 34 MILLIGRAM, QD
     Route: 048
     Dates: start: 20220205
  2. NUPLAZID [Suspect]
     Active Substance: PIMAVANSERIN TARTRATE
     Indication: Hallucination, visual
     Dosage: 34 MILLIGRAM, QD
     Route: 048
  3. NUPLAZID [Suspect]
     Active Substance: PIMAVANSERIN TARTRATE
     Dosage: 34 MILLIGRAM, QD
     Route: 048
  4. NUPLAZID [Suspect]
     Active Substance: PIMAVANSERIN TARTRATE
     Dosage: 34 MILLIGRAM, QD
     Route: 048
  5. ATORVASTATIN [Concomitant]
     Active Substance: ATORVASTATIN
  6. CARBIDOPA\LEVODOPA [Concomitant]
     Active Substance: CARBIDOPA\LEVODOPA
  7. GOCOVRI [Concomitant]
     Active Substance: AMANTADINE
  8. LASIX [Concomitant]
     Active Substance: FUROSEMIDE
  9. POTASSIUM CITRATE [Concomitant]
     Active Substance: POTASSIUM CITRATE
  10. QUETIAPINE [Concomitant]
     Active Substance: QUETIAPINE
  11. TAMSULOSIN [Concomitant]
     Active Substance: TAMSULOSIN
  12. VITAMIN B COMPLEX WITH VITAMIN C [ASCORBIC ACID;CYANOCOBALAMIN;FOLIC A [Concomitant]

REACTIONS (4)
  - Condition aggravated [Unknown]
  - Peripheral swelling [Unknown]
  - Product dose omission issue [Unknown]
  - Product dose omission issue [Unknown]
